FAERS Safety Report 4775857-5 (Version None)
Quarter: 2005Q3

REPORT INFORMATION
  Report Type: 
  Country: None (occurrence: None)
  Receive Date: 20050914
  Receipt Date: 20050324
  Transmission Date: 20060218
  Serious: Yes (Hospitalization)
  Sender: FDA-Public Use
  Company Number: 163-20785-05030670

PATIENT
  Age: 52 Year
  Sex: Male

DRUGS (11)
  1. THALOMID [Suspect]
     Indication: MULTIPLE MYELOMA
     Dosage: SEE IMAGE
     Route: 048
     Dates: start: 20050328, end: 20050331
  2. THALOMID [Suspect]
     Indication: MULTIPLE MYELOMA
     Dosage: SEE IMAGE
     Route: 048
     Dates: start: 20050401, end: 20050406
  3. THALOMID [Suspect]
     Indication: MULTIPLE MYELOMA
     Dosage: SEE IMAGE
     Route: 048
     Dates: start: 20050304
  4. THALOMID [Suspect]
     Indication: MULTIPLE MYELOMA
     Dosage: SEE IMAGE
     Route: 048
     Dates: start: 20050407
  5. ATENOLOL [Concomitant]
  6. TEQUIN [Concomitant]
  7. POTASSIUM CHLORIDE [Concomitant]
  8. PERCOCET [Concomitant]
  9. MS CONTIN [Concomitant]
  10. SENOKOT [Concomitant]
  11. LORAZEPAM [Concomitant]

REACTIONS (1)
  - ORTHOSTATIC HYPOTENSION [None]
